FAERS Safety Report 8104200-9 (Version None)
Quarter: 2012Q1

REPORT INFORMATION
  Report Type: 
  Country: None (occurrence: None)
  Receive Date: 20120201
  Receipt Date: 20120117
  Transmission Date: 20120608
  Serious: Yes (Other)
  Sender: FDA-Public Use
  Company Number: US-WATSON-2012-01267

PATIENT
  Age: 50 Year
  Sex: Male

DRUGS (4)
  1. IBUPROFEN [Suspect]
     Indication: CHRONIC SINUSITIS
     Route: 065
  2. KETOROLAC TROMETHAMINE [Suspect]
  3. ACETAMINOPHEN [Suspect]
     Indication: CHRONIC SINUSITIS
     Route: 065
  4. ASPIRIN [Suspect]

REACTIONS (4)
  - THROAT TIGHTNESS [None]
  - DYSPNOEA [None]
  - NASAL CONGESTION [None]
  - WHEEZING [None]
